FAERS Safety Report 17912016 (Version 1)
Quarter: 2020Q2

REPORT INFORMATION
  Report Type: Spontaneous
  Country: CA (occurrence: CA)
  Receive Date: 20200618
  Receipt Date: 20200618
  Transmission Date: 20200714
  Serious: Yes (Other)
  Sender: FDA-Public Use
  Company Number: CA-TEVA-2020-CA-1789003

PATIENT
  Age: 56 Year
  Sex: Male

DRUGS (3)
  1. FOLIC ACID. [Concomitant]
     Active Substance: FOLIC ACID
  2. METHOTREXATE. [Suspect]
     Active Substance: METHOTREXATE
     Indication: PRODUCT USED FOR UNKNOWN INDICATION
     Dosage: 4 MONTHS
     Route: 065
  3. PREDNISONE. [Concomitant]
     Active Substance: PREDNISONE

REACTIONS (6)
  - Mental impairment [Unknown]
  - Malaise [Unknown]
  - Drug intolerance [Unknown]
  - Hypotension [Unknown]
  - Syncope [Unknown]
  - Dermatitis psoriasiform [Unknown]
